FAERS Safety Report 6313769-6 (Version None)
Quarter: 2009Q3

REPORT INFORMATION
  Report Type: 
  Country: None (occurrence: None)
  Receive Date: 20090818
  Receipt Date: 20081111
  Transmission Date: 20100115
  Serious: No
  Sender: FDA-Public Use
  Company Number: US-BRISTOL-MYERS SQUIBB COMPANY-14405229

PATIENT

DRUGS (3)
  1. REYATAZ [Suspect]
     Indication: HIV INFECTION
  2. SUSTIVA [Concomitant]
     Indication: HIV INFECTION
  3. KALETRA [Concomitant]
     Indication: HIV INFECTION

REACTIONS (1)
  - BLOOD GLUCOSE INCREASED [None]
